FAERS Safety Report 8578776-1 (Version None)
Quarter: 2012Q3

REPORT INFORMATION
  Report Type: 
  Country: None (occurrence: None)
  Receive Date: 20120808
  Receipt Date: 20120801
  Transmission Date: 20120928
  Serious: Yes (Hospitalization, Other)
  Sender: FDA-Public Use
  Company Number: KR-ROXANE LABORATORIES, INC.-2012-RO-01629RO

PATIENT
  Age: 40 Year
  Sex: Female

DRUGS (9)
  1. AZATHIOPRINE SODIUM [Suspect]
     Indication: SYSTEMIC LUPUS ERYTHEMATOSUS
  2. AZATHIOPRINE SODIUM [Suspect]
     Indication: OVERLAP SYNDROME
  3. AZATHIOPRINE SODIUM [Suspect]
     Indication: SYSTEMIC SCLEROSIS
  4. PREDNISOLONE [Suspect]
     Indication: SYSTEMIC LUPUS ERYTHEMATOSUS
  5. PREDNISOLONE [Suspect]
     Indication: OVERLAP SYNDROME
  6. HYDROXYCHLOROQUINE SULFATE [Suspect]
     Indication: SYSTEMIC LUPUS ERYTHEMATOSUS
  7. HYDROXYCHLOROQUINE SULFATE [Suspect]
     Indication: SYSTEMIC SCLEROSIS
  8. HYDROXYCHLOROQUINE SULFATE [Suspect]
     Indication: OVERLAP SYNDROME
  9. PREDNISOLONE [Suspect]
     Indication: SYSTEMIC SCLEROSIS
     Dosage: 10 MG

REACTIONS (3)
  - NECROTISING FASCIITIS [None]
  - ENTEROBACTER INFECTION [None]
  - ENTEROCOCCAL INFECTION [None]
